FAERS Safety Report 19246549 (Version 1)
Quarter: 2021Q2

REPORT INFORMATION
  Report Type: Spontaneous
  Country: AU (occurrence: AU)
  Receive Date: 20210512
  Receipt Date: 20210512
  Transmission Date: 20210717
  Serious: Yes (Life-Threatening, Hospitalization)
  Sender: FDA-Public Use
  Company Number: AU-JNJFOC-20210460660

PATIENT

DRUGS (4)
  1. PARACETAMOL [Suspect]
     Active Substance: ACETAMINOPHEN
     Indication: SUBSTANCE USE
  2. PARACETAMOL [Suspect]
     Active Substance: ACETAMINOPHEN
     Indication: PRODUCT USED FOR UNKNOWN INDICATION
     Route: 048
  3. PREGABALIN. [Suspect]
     Active Substance: PREGABALIN
     Indication: SUBSTANCE USE
  4. PREGABALIN. [Suspect]
     Active Substance: PREGABALIN
     Indication: PRODUCT USED FOR UNKNOWN INDICATION
     Dosage: THE MEDIAN DOSE OF PREGABALIN INGESTED WAS 1500 MG (IQR 7502700 MG)  MEDIAN DOSE WAS 1200 MG (IQR 6
     Route: 048

REACTIONS (7)
  - Poisoning deliberate [Unknown]
  - Hypotension [Unknown]
  - Accidental overdose [Unknown]
  - Seizure [Unknown]
  - Coma [Unknown]
  - Intentional overdose [Unknown]
  - Intentional product misuse [Unknown]
